FAERS Safety Report 9846856 (Version 3)
Quarter: 2014Q3

REPORT INFORMATION
  Report Type: Spontaneous
  Country: US (occurrence: US)
  Receive Date: 20140127
  Receipt Date: 20140724
  Transmission Date: 20150326
  Serious: Yes (Life-Threatening, Congenital Anomaly, Other)
  Sender: FDA-Public Use
  Company Number: US-PFIZER INC-2014021334

PATIENT
  Sex: Female

DRUGS (2)
  1. SERTRALINE HCL [Suspect]
     Active Substance: SERTRALINE HYDROCHLORIDE
     Dosage: UNK
     Route: 064
     Dates: start: 200801
  2. ZOLOFT [Suspect]
     Active Substance: SERTRALINE HYDROCHLORIDE
     Dosage: UNK
     Route: 064
     Dates: start: 200801

REACTIONS (11)
  - Heart disease congenital [Unknown]
  - Developmental hip dysplasia [Unknown]
  - Talipes [Unknown]
  - Scoliosis [Unknown]
  - Umbilical hernia [Unknown]
  - Premature baby [Unknown]
  - Cardiac disorder [Unknown]
  - Gastric perforation [Unknown]
  - Congenital anomaly [Unknown]
  - Maternal exposure during pregnancy [Unknown]
  - Spine malformation [Unknown]

NARRATIVE: CASE EVENT DATE: 20081005
